FAERS Safety Report 15591704 (Version 1)
Quarter: 2018Q4

REPORT INFORMATION
  Report Type: Spontaneous
  Country: CN (occurrence: CN)
  Receive Date: 20181107
  Receipt Date: 20181107
  Transmission Date: 20190205
  Serious: Yes (Other)
  Sender: FDA-Public Use
  Company Number: CN-PFIZER INC-2018450797

PATIENT
  Age: 51 Year
  Sex: Male

DRUGS (4)
  1. ASPIRIN (E.C.) [Suspect]
     Active Substance: ASPIRIN
     Indication: THERAPEUTIC PROCEDURE
     Dosage: 300 MG, 1X/DAY
     Route: 048
     Dates: start: 20180830, end: 20180830
  2. CEREBROPROTEIN HYDROLYSATE/TROXERUTIN [Concomitant]
     Indication: ADJUVANT THERAPY
     Dosage: 4 ML, 1X/DAY
     Route: 041
     Dates: start: 20180830, end: 20180901
  3. OZAGREL SODIUM AND SODIUM CHLORIDE [Concomitant]
     Indication: PLATELET DISORDER
     Dosage: 250 MG, 1X/DAY
     Route: 041
     Dates: start: 20180830, end: 20180901
  4. LIPITOR [Suspect]
     Active Substance: ATORVASTATIN CALCIUM
     Indication: HYPERLIPIDAEMIA
     Dosage: 40 MG, 1X/DAY
     Route: 048
     Dates: start: 20180830, end: 20180830

REACTIONS (6)
  - Palpitations [Recovering/Resolving]
  - Chest discomfort [Recovering/Resolving]
  - Hepatic function abnormal [Recovering/Resolving]
  - Renal impairment [Recovering/Resolving]
  - Tremor [Recovering/Resolving]
  - Asthma [Recovering/Resolving]

NARRATIVE: CASE EVENT DATE: 20180830
